FAERS Safety Report 25728419 (Version 1)
Quarter: 2025Q3

REPORT INFORMATION
  Report Type: Spontaneous
  Country: GB (occurrence: GB)
  Receive Date: 20250826
  Receipt Date: 20250826
  Transmission Date: 20251021
  Serious: Yes (Disabling, Other)
  Sender: SANDOZ
  Company Number: None

PATIENT
  Age: 66 Year
  Sex: Male
  Weight: 92 kg

DRUGS (9)
  1. EZETIMIBE [Suspect]
     Active Substance: EZETIMIBE
     Indication: Ill-defined disorder
     Route: 065
     Dates: start: 20250819
  2. AMLODIPINE [Concomitant]
     Active Substance: AMLODIPINE BESYLATE
     Indication: Ill-defined disorder
     Dosage: TAKE ONE DAILY
     Route: 065
     Dates: start: 20230715
  3. ATORVASTATIN [Concomitant]
     Active Substance: ATORVASTATIN
     Indication: Ill-defined disorder
     Dosage: TAKE ONE DAILY FOR SECONDARY PREVENTION OF CARD...
     Route: 065
     Dates: start: 20230715
  4. BENDROFLUMETHIAZIDE [Concomitant]
     Active Substance: BENDROFLUMETHIAZIDE
     Indication: Ill-defined disorder
     Dosage: ONE TO BE TAKEN DAILY
     Route: 065
     Dates: start: 20230715
  5. CANDESARTAN [Concomitant]
     Active Substance: CANDESARTAN
     Indication: Ill-defined disorder
     Dosage: ONE TO BE TAKEN IN THE MORNING
     Route: 065
     Dates: start: 20230715
  6. DAPAGLIFLOZIN [Concomitant]
     Active Substance: DAPAGLIFLOZIN
     Indication: Ill-defined disorder
     Dosage: TAKE ONE DAILY FOR DIABETES.
     Route: 065
     Dates: start: 20240806
  7. EZETIMIBE [Concomitant]
     Active Substance: EZETIMIBE
     Indication: Ill-defined disorder
     Dosage: (10MG TABLETS) TAKE ONE DAILY FOR SECONDARY PREVENTION OF CARD...
     Route: 065
     Dates: start: 20250624
  8. METFORMIN [Concomitant]
     Active Substance: METFORMIN HYDROCHLORIDE
     Indication: Ill-defined disorder
     Dosage: TAKE 1 TABLET TWICE DAILY WITH MEALS
     Route: 065
     Dates: start: 20230715
  9. TRULICITY [Concomitant]
     Active Substance: DULAGLUTIDE
     Indication: Ill-defined disorder
     Route: 065
     Dates: start: 20230715

REACTIONS (2)
  - Muscle spasms [Recovering/Resolving]
  - Dizziness [Recovered/Resolved]

NARRATIVE: CASE EVENT DATE: 20250819
